FAERS Safety Report 5223715-4 (Version None)
Quarter: 2007Q1

REPORT INFORMATION
  Report Type: 
  Country: None (occurrence: None)
  Receive Date: 20070126
  Receipt Date: 20070118
  Transmission Date: 20070707
  Serious: Yes (Other)
  Sender: FDA-Public Use
  Company Number: CAP07000029

PATIENT
  Age: 58 Year
  Sex: Female

DRUGS (1)
  1. ACTONEL [Suspect]
     Indication: OSTEOPOROSIS
     Dosage: 35 MG ONCE WEEKLY, ORAL
     Route: 048
     Dates: start: 20030101

REACTIONS (4)
  - ARTHRALGIA [None]
  - HYPERTENSION [None]
  - PHOTOPSIA [None]
  - RETINAL DETACHMENT [None]
